FAERS Safety Report 19418085 (Version 1)
Quarter: 2021Q2

REPORT INFORMATION
  Report Type: Spontaneous
  Country: US (occurrence: US)
  Receive Date: 20210615
  Receipt Date: 20210615
  Transmission Date: 20210717
  Serious: No
  Sender: FDA-Public Use
  Company Number: None

PATIENT
  Age: 0 Day
  Sex: Female

DRUGS (5)
  1. METRONDAZOL [Concomitant]
  2. ELIQUIS [Concomitant]
     Active Substance: APIXABAN
  3. ATENOLOL. [Concomitant]
     Active Substance: ATENOLOL
  4. XELJANZ [Suspect]
     Active Substance: TOFACITINIB CITRATE
     Indication: RHEUMATOID ARTHRITIS
     Route: 048
  5. PREDNISONE. [Concomitant]
     Active Substance: PREDNISONE

REACTIONS (3)
  - Thrombosis [None]
  - Diverticulitis [None]
  - Abscess [None]

NARRATIVE: CASE EVENT DATE: 19490405
